FAERS Safety Report 11771756 (Version 1)
Quarter: 2015Q4

REPORT INFORMATION
  Report Type: Spontaneous
  Country: US (occurrence: None)
  Receive Date: 20151123
  Receipt Date: 20151123
  Transmission Date: 20160304
  Serious: Yes (Life-Threatening, Hospitalization)
  Sender: FDA-Public Use
  Company Number: None

PATIENT
  Age: 22 Year
  Sex: Female
  Weight: 58.97 kg

DRUGS (3)
  1. ARIPIPRAZOLE. [Concomitant]
     Active Substance: ARIPIPRAZOLE
  2. CITALOPRAM [Concomitant]
     Active Substance: CITALOPRAM HYDROBROMIDE
  3. ZYPREXA RELPREVV [Suspect]
     Active Substance: OLANZAPINE PAMOATE

REACTIONS (10)
  - Fatigue [None]
  - Hypoaesthesia [None]
  - Anxiety [None]
  - Injection site urticaria [None]
  - Restlessness [None]
  - Depression [None]
  - Starvation [None]
  - Urticaria [None]
  - Headache [None]
  - Suicidal ideation [None]

NARRATIVE: CASE EVENT DATE: 20150521
